FAERS Safety Report 24136044 (Version 2)
Quarter: 2024Q3

REPORT INFORMATION
  Report Type: Spontaneous
  Country: KR (occurrence: KR)
  Receive Date: 20240725
  Receipt Date: 20240729
  Transmission Date: 20241017
  Serious: Yes (Disabling, Other)
  Sender: PFIZER
  Company Number: KR-BRISTOL-MYERS SQUIBB COMPANY-2024-115655

PATIENT
  Age: 82 Year
  Sex: Female
  Weight: 53.4 kg

DRUGS (18)
  1. ELIQUIS [Suspect]
     Active Substance: APIXABAN
     Dosage: 2.5 MG, 2X/DAY(FREQ:.5 D;)
     Dates: start: 20210423
  2. PIPERACILLIN SODIUM\TAZOBACTAM SODIUM [Suspect]
     Active Substance: PIPERACILLIN SODIUM\TAZOBACTAM SODIUM
     Dosage: 1 DOSAGE, 0.25 DAY
     Dates: start: 20210603, end: 20210613
  3. DONEPEZIL HYDROCHLORIDE [Concomitant]
     Active Substance: DONEPEZIL HYDROCHLORIDE
     Dosage: 1 DOSAGE, 2X/DAY
     Dates: start: 20210416
  4. CHOLINE ALFOSCERATE [Concomitant]
     Active Substance: CHOLINE ALFOSCERATE
     Dosage: 1 DOSAGE   , 1X/DAY
     Dates: start: 20210416
  5. RISPERIDONE [Concomitant]
     Active Substance: RISPERIDONE
     Dosage: 1 DOSAGE   , 1X/DAY
     Dates: start: 20210416
  6. CLONAZEPAM [Concomitant]
     Active Substance: CLONAZEPAM
     Dosage: 1 DOSAGE   , 1X/DAY
     Dates: start: 20210416
  7. DULOXETINE HYDROCHLORIDE [Concomitant]
     Active Substance: DULOXETINE HYDROCHLORIDE
     Dosage: 1 DOSAGE   , 1X/DAY
     Dates: start: 20210416
  8. TRAZODONE HYDROCHLORIDE [Concomitant]
     Active Substance: TRAZODONE HYDROCHLORIDE
     Dosage: 1 DOSAGE   , 1X/DAY
     Dates: start: 20210416
  9. CARBIDOPA [Concomitant]
     Active Substance: CARBIDOPA
     Dosage: 1 DOSAGE   , 2X/DAY
     Dates: start: 20210416
  10. LEVODOPA [Concomitant]
     Active Substance: LEVODOPA
     Dosage: 1 DOSAGE   , 2X/DAY
     Dates: start: 20210416
  11. PRAVASTATIN SODIUM [Concomitant]
     Active Substance: PRAVASTATIN SODIUM
     Dosage: 1 DOSAGE   , 1X/DAY
     Dates: start: 20210502
  12. GLICLAZIDE [Concomitant]
     Active Substance: GLICLAZIDE
     Dosage: 1 DOSAGE   , 1X/DAY
     Dates: start: 20210502
  13. LINAGLIPTIN [Concomitant]
     Active Substance: LINAGLIPTIN
     Dosage: 1 DOSAGE   , 1X/DAY
     Dates: start: 20210501
  14. SACCHAROMYCES CEREVISIAE [Concomitant]
     Active Substance: SACCHAROMYCES CEREVISIAE
     Dosage: 1 DOSAGE   , 2X/DAY
     Dates: start: 20210416
  15. AMLODIPINE BESYLATE [Concomitant]
     Active Substance: AMLODIPINE BESYLATE
     Dosage: 1 DOSAGE   , 1X/DAY
     Dates: start: 20210425
  16. LANSOPRAZOLE [Concomitant]
     Active Substance: LANSOPRAZOLE
     Dosage: 1 DOSAGE   , 1X/DAY
     Dates: start: 20210608
  17. REBAMIPIDE [Concomitant]
     Active Substance: REBAMIPIDE
     Dosage: 1 DOSAGE   , 3X/DAY
     Dates: start: 20210513
  18. MONTELUKAST SODIUM [Concomitant]
     Active Substance: MONTELUKAST SODIUM
     Dosage: 1 DOSAGE   , 1X/DAY
     Dates: start: 20210423

REACTIONS (2)
  - Cutaneous vasculitis [Recovered/Resolved]
  - Renal failure [Recovered/Resolved]

NARRATIVE: CASE EVENT DATE: 20210613
